FAERS Safety Report 17407729 (Version 1)
Quarter: 2020Q1

REPORT INFORMATION
  Report Type: Spontaneous
  Country: US (occurrence: US)
  Receive Date: 20200212
  Receipt Date: 20200212
  Transmission Date: 20200409
  Serious: Yes (Hospitalization)
  Sender: FDA-Public Use
  Company Number: US-SA-2020SA036385

PATIENT
  Age: 52 Year
  Sex: Female

DRUGS (26)
  1. LIDOCAINE. [Concomitant]
     Active Substance: LIDOCAINE
  2. BYDUREON [Concomitant]
     Active Substance: EXENATIDE
  3. PAROXETINE HCL [Concomitant]
     Active Substance: PAROXETINE HYDROCHLORIDE
  4. DUPIXENT [Suspect]
     Active Substance: DUPILUMAB
     Indication: ASTHMA
     Dosage: 300 MG, QOW
     Route: 058
     Dates: start: 20190409
  5. GABAPENTIN. [Concomitant]
     Active Substance: GABAPENTIN
  6. LANTUS [Concomitant]
     Active Substance: INSULIN GLARGINE
  7. HUMALOG [Concomitant]
     Active Substance: INSULIN LISPRO
  8. SULFAMETHOXAZOLE;TRIMETHOPRIM [Concomitant]
     Active Substance: SULFAMETHOXAZOLE\TRIMETHOPRIM
  9. HUMULIN N [Concomitant]
     Active Substance: INSULIN HUMAN
  10. LEVOTHYROXINE SODIUM. [Concomitant]
     Active Substance: LEVOTHYROXINE SODIUM
  11. FUROSEMIDE. [Concomitant]
     Active Substance: FUROSEMIDE
  12. FLUCONAZOLE. [Concomitant]
     Active Substance: FLUCONAZOLE
  13. DILTIAZEM. [Concomitant]
     Active Substance: DILTIAZEM
  14. BIOTIN [Concomitant]
     Active Substance: BIOTIN
  15. VANCOMYCIN HCL [Concomitant]
     Active Substance: VANCOMYCIN HYDROCHLORIDE
  16. OMEPRAZOLE. [Concomitant]
     Active Substance: OMEPRAZOLE
  17. PREDNISONE. [Concomitant]
     Active Substance: PREDNISONE
  18. FLUTICASONE PROPIONATE. [Concomitant]
     Active Substance: FLUTICASONE PROPIONATE
  19. VITAMIN D3 [Concomitant]
     Active Substance: CHOLECALCIFEROL
  20. WARFARIN SODIUM. [Concomitant]
     Active Substance: WARFARIN SODIUM
  21. LORAZEPAM. [Concomitant]
     Active Substance: LORAZEPAM
  22. ZAFIRLUKAST. [Concomitant]
     Active Substance: ZAFIRLUKAST
  23. METFORMIN HCL [Concomitant]
     Active Substance: METFORMIN HYDROCHLORIDE
  24. CELLCEPT [Concomitant]
     Active Substance: MYCOPHENOLATE MOFETIL\MYCOPHENOLATE MOFETIL HYDROCHLORIDE
  25. ADVIL [IBUPROFEN] [Concomitant]
     Active Substance: IBUPROFEN
  26. LOSARTAN POTASSIUM. [Concomitant]
     Active Substance: LOSARTAN POTASSIUM

REACTIONS (1)
  - Urinary tract infection [Unknown]
